FAERS Safety Report 6929138-1 (Version None)
Quarter: 2010Q3

REPORT INFORMATION
  Report Type: 
  Country: None (occurrence: None)
  Receive Date: 20100812
  Receipt Date: 20100804
  Transmission Date: 20110219
  Serious: Yes (Hospitalization)
  Sender: FDA-Public Use
  Company Number: 016606

PATIENT
  Sex: Female

DRUGS (13)
  1. KEPPRA [Suspect]
     Dosage: (250 MG ORAL) ; (500 MG ORAL)
     Route: 048
     Dates: start: 20100629, end: 20100705
  2. KEPPRA [Suspect]
     Dosage: (250 MG ORAL) ; (500 MG ORAL)
     Route: 048
     Dates: start: 20100706, end: 20100712
  3. DALACINE /00166003/ (DALACINE) [Suspect]
     Dosage: (600 MG QID INTRAVENOUS NOT OTHERWISE SPECIFIED))
     Route: 042
     Dates: start: 20100630, end: 20100709
  4. MALOCIDE /00112501/ (MALOCIDE) [Suspect]
     Dosage: (50 MG BID ORAL) ; (50 MG QD ORAL)
     Route: 048
     Dates: start: 20100629, end: 20100701
  5. MALOCIDE /00112501/ (MALOCIDE) [Suspect]
     Dosage: (50 MG BID ORAL) ; (50 MG QD ORAL)
     Route: 048
     Dates: start: 20100702, end: 20100712
  6. TOPALGIC /0059202/ (TOPALGIC) (NOT SPECIFIED) [Suspect]
     Dosage: (50 MG BID ORAL)
     Route: 048
     Dates: start: 20100624, end: 20100702
  7. PRIMPERAN TAB [Suspect]
     Dosage: (3 DOSAGE FORMS ORAL)
     Route: 048
     Dates: start: 20100702, end: 20100705
  8. ANTIVIRALS NOS (ATRIPLA)(EFAVIRENZ, EMTRICITABINE, TENOFOVIR DISOPROXI [Suspect]
     Dosage: (600MG/200MG/245MG (EFAVIRENZ, EMTRICITABINE, TENOFOVIR DISPROXIL) 1 DOSAGE FORM ORAL)
     Route: 048
     Dates: start: 20090701, end: 20100709
  9. IDARAC [Suspect]
     Dosage: (ORAL)
     Route: 048
     Dates: start: 20100628, end: 20100710
  10. ATOVAQUONE [Suspect]
     Dosage: (750 MG BID ORAL)
     Route: 048
     Dates: start: 20100625, end: 20100702
  11. SPECIAFOLDINE (SPECIAFOLDINE) (NOT SPECIFIED) [Suspect]
     Dates: end: 20100711
  12. ATARAX [Concomitant]
  13. LEXOMIL [Concomitant]

REACTIONS (12)
  - AMNESIA [None]
  - ANAEMIA [None]
  - ASTHENIA [None]
  - CEREBRAL TOXOPLASMOSIS [None]
  - GRAND MAL CONVULSION [None]
  - HEADACHE [None]
  - LEUKOPENIA [None]
  - LOSS OF CONSCIOUSNESS [None]
  - MALAISE [None]
  - NEUTROPENIA [None]
  - THROMBOCYTOPENIA [None]
  - TREATMENT NONCOMPLIANCE [None]
